FAERS Safety Report 5234143-X (Version None)
Quarter: 2007Q1

REPORT INFORMATION
  Report Type: 
  Country: None (occurrence: None)
  Receive Date: 20070208
  Receipt Date: 20070201
  Transmission Date: 20070707
  Serious: Yes (Other)
  Sender: FDA-Public Use
  Company Number: JP-MERCK-0701USA04494

PATIENT
  Age: 48 Year
  Sex: Male

DRUGS (9)
  1. PEPCID [Suspect]
     Indication: GASTRIC ULCER
     Route: 042
     Dates: start: 20070121, end: 20070123
  2. CEFMETAZON [Suspect]
     Route: 041
  3. GABEXATE MESYLATE [Concomitant]
     Route: 065
  4. SOLULACT [Concomitant]
     Route: 065
  5. [THERAPY UNSPECIFIED] [Concomitant]
     Route: 065
  6. CAMOSTATE [Concomitant]
     Route: 065
  7. MIYA BM [Concomitant]
     Route: 065
  8. DIGESTIVE ENZYMES [Concomitant]
     Route: 065
  9. FOY [Suspect]
     Route: 065

REACTIONS (1)
  - VASCULITIS [None]
